FAERS Safety Report 14994874 (Version 2)
Quarter: 2018Q2

REPORT INFORMATION
  Report Type: Spontaneous
  Country: ES (occurrence: ES)
  Receive Date: 20180611
  Receipt Date: 20180621
  Transmission Date: 20180711
  Serious: Yes (Other)
  Sender: FDA-Public Use
  Company Number: ES-009507513-1806ESP001481

PATIENT
  Age: 85 Year
  Sex: Male

DRUGS (8)
  1. SINEMET PLUS 25/100 MG (IR) [Suspect]
     Active Substance: CARBIDOPA\LEVODOPA
     Indication: PARKINSON^S DISEASE
     Dosage: 1 TABLET AT BREAKFAST, AT LUNCH AND AT NIGHT (1-1-1)
     Route: 048
     Dates: start: 20180514, end: 20180528
  2. VALS [Concomitant]
     Indication: HYPERTENSION
     Dosage: UNK
  3. SINEMET PLUS 25/100 MG (IR) [Suspect]
     Active Substance: CARBIDOPA\LEVODOPA
     Dosage: 2 TABLETS AT BREAKFAST, 1 AT LUNCH AND 1 AT NIGHT (2-1-1)
     Route: 048
     Dates: start: 20180605
  4. SINEMET [Suspect]
     Active Substance: CARBIDOPA\LEVODOPA
     Indication: PARKINSON^S DISEASE
     Dosage: 1 TABLET AT BREAKFAST, AT LUNCH AND AT NIGHT (1-1-1)
     Route: 048
     Dates: start: 20180528, end: 20180601
  5. BETMIGA [Concomitant]
     Active Substance: MIRABEGRON
     Dosage: UNK
  6. SINEMET PLUS 25/100 MG (IR) [Suspect]
     Active Substance: CARBIDOPA\LEVODOPA
     Dosage: 1 TABLET AT BREAKFAST, AT LUNCH AND AT NIGHT (1-1-1)
     Route: 048
     Dates: start: 20180601, end: 20180605
  7. DUODART [Concomitant]
     Active Substance: DUTASTERIDE\TAMSULOSIN
     Dosage: UNK
  8. SINTROM [Concomitant]
     Active Substance: ACENOCOUMAROL
     Indication: CARDIAC PACEMAKER INSERTION
     Dosage: UNK

REACTIONS (6)
  - Swollen tongue [Recovered/Resolved]
  - Arthralgia [Not Recovered/Not Resolved]
  - Dyspnoea [Recovered/Resolved]
  - Chest pain [Recovered/Resolved]
  - Dry mouth [Recovered/Resolved]
  - Headache [Recovered/Resolved]

NARRATIVE: CASE EVENT DATE: 201805
